FAERS Safety Report 10731062 (Version 1)
Quarter: 2015Q1

REPORT INFORMATION
  Report Type: Spontaneous
  Country: JP (occurrence: JP)
  Receive Date: 20150122
  Receipt Date: 20150122
  Transmission Date: 20150721
  Serious: Yes (Other)
  Sender: FDA-Public Use
  Company Number: JP-EMD SERONO-8005550

PATIENT
  Sex: Female

DRUGS (1)
  1. SEROPHENE [Suspect]
     Active Substance: CLOMIPHENE CITRATE
     Indication: OVULATION INDUCTION
     Route: 064

REACTIONS (4)
  - Retinopathy of prematurity [Unknown]
  - Osteopenia [Unknown]
  - Anaemia neonatal [Unknown]
  - Low birth weight baby [Unknown]
